FAERS Safety Report 12570106 (Version 1)
Quarter: 2016Q3

REPORT INFORMATION
  Report Type: Spontaneous
  Country: US (occurrence: US)
  Receive Date: 20160719
  Receipt Date: 20160719
  Transmission Date: 20161109
  Serious: No
  Sender: FDA-Public Use
  Company Number: US-TEVA-667684USA

PATIENT
  Age: 37 Year
  Sex: Male

DRUGS (2)
  1. ZECUITY [Suspect]
     Active Substance: SUMATRIPTAN SUCCINATE
     Indication: VERTEBROBASILAR INSUFFICIENCY
     Route: 062
  2. ZECUITY [Suspect]
     Active Substance: SUMATRIPTAN SUCCINATE
     Indication: HEADACHE

REACTIONS (5)
  - Product leakage [Unknown]
  - Application site erythema [Recovered/Resolved]
  - Incorrect drug administration duration [Unknown]
  - Burning sensation [Recovered/Resolved]
  - Application site urticaria [Recovered/Resolved]
